FAERS Safety Report 20467988 (Version 1)
Quarter: 2022Q1

REPORT INFORMATION
  Report Type: Spontaneous
  Country: DE (occurrence: DE)
  Receive Date: 20220214
  Receipt Date: 20220214
  Transmission Date: 20220423
  Serious: No
  Sender: FDA-Public Use
  Company Number: DE-ALKEM LABORATORIES LIMITED-DE-ALKEM-2021-07329

PATIENT
  Sex: Female

DRUGS (4)
  1. EZETIMIBE [Suspect]
     Active Substance: EZETIMIBE
     Indication: Blood cholesterol
     Dosage: 10 MILLIGRAM, QD
     Route: 048
     Dates: start: 20211017
  2. EZETIMIBE [Suspect]
     Active Substance: EZETIMIBE
     Dosage: 10 MILLIGRAM, QD
     Route: 048
     Dates: start: 20211020
  3. EZETIMIBE [Suspect]
     Active Substance: EZETIMIBE
     Dosage: 10 MILLIGRAM, QD
     Route: 048
     Dates: start: 20211024
  4. ASS 100 [Acetylsalicylic Acid] [Concomitant]
     Indication: Product used for unknown indication
     Dosage: UNK
     Route: 065

REACTIONS (2)
  - Tongue disorder [Not Recovered/Not Resolved]
  - Neck pain [Recovered/Resolved]

NARRATIVE: CASE EVENT DATE: 20211017
